FAERS Safety Report 5098069-7 (Version None)
Quarter: 2006Q3

REPORT INFORMATION
  Report Type: 
  Country: None (occurrence: None)
  Receive Date: 20060906
  Receipt Date: 20060809
  Transmission Date: 20061208
  Serious: Yes (Hospitalization)
  Sender: FDA-Public Use
  Company Number: US-AMGEN-STX189454

PATIENT
  Sex: Male

DRUGS (2)
  1. ENBREL [Suspect]
     Indication: RHEUMATOID ARTHRITIS
     Route: 058
     Dates: start: 20030101
  2. PLAQUENIL [Concomitant]
     Route: 048
     Dates: start: 20020101

REACTIONS (4)
  - BURNING SENSATION [None]
  - LUMBAR SPINAL STENOSIS [None]
  - RASH ERYTHEMATOUS [None]
  - RASH PRURITIC [None]
